FAERS Safety Report 14008324 (Version 2)
Quarter: 2017Q4

REPORT INFORMATION
  Report Type: Spontaneous
  Country: FR (occurrence: FR)
  Receive Date: 20170925
  Receipt Date: 20171003
  Transmission Date: 20180321
  Serious: Yes (Other)
  Sender: FDA-Public Use
  Company Number: FR-MERCK KGAA-2027560

PATIENT
  Age: 27 Year
  Sex: Male

DRUGS (1)
  1. NOVOTHYROX [Suspect]
     Active Substance: LEVOTHYROXINE SODIUM
     Indication: HYPOTHYROIDISM
     Route: 048
     Dates: start: 201708

REACTIONS (11)
  - Palpitations [None]
  - Gastrointestinal pain [Not Recovered/Not Resolved]
  - Headache [None]
  - Vertigo [None]
  - Insomnia [None]
  - Visual impairment [Not Recovered/Not Resolved]
  - Tinnitus [None]
  - Blood thyroid stimulating hormone [None]
  - Dizziness [Not Recovered/Not Resolved]
  - Fatigue [Not Recovered/Not Resolved]
  - Myalgia [None]

NARRATIVE: CASE EVENT DATE: 2017
